FAERS Safety Report 19358488 (Version 1)
Quarter: 2021Q2

REPORT INFORMATION
  Report Type: Spontaneous
  Country: US (occurrence: US)
  Receive Date: 20210601
  Receipt Date: 20210601
  Transmission Date: 20210717
  Serious: No
  Sender: FDA-Public Use
  Company Number: US-DRREDDYS-USA/USA/21/0136026

PATIENT
  Age: 72 Year
  Sex: Female
  Weight: 74.25 kg

DRUGS (2)
  1. SUMATRIPTAN INJECTION USP, 6 MG/0.5 ML [Suspect]
     Active Substance: SUMATRIPTAN
     Indication: MIGRAINE
     Dosage: 6MG/0.5ML INJECT AT THE ONSET OF MIGRAINE
     Dates: start: 20210525
  2. TOPAMAX [Concomitant]
     Active Substance: TOPIRAMATE
     Indication: PRODUCT USED FOR UNKNOWN INDICATION

REACTIONS (3)
  - Flushing [Unknown]
  - Injection site haemorrhage [Unknown]
  - Product quality issue [Unknown]
